FAERS Safety Report 6912963-0 (Version None)
Quarter: 2010Q3

REPORT INFORMATION
  Report Type: 
  Country: None (occurrence: None)
  Receive Date: 20100806
  Receipt Date: 20090506
  Transmission Date: 20110219
  Serious: No
  Sender: FDA-Public Use
  Company Number: US-PFIZER INC-2009209588

PATIENT
  Sex: Female
  Weight: 128.35 kg

DRUGS (7)
  1. DETROL LA [Suspect]
     Indication: URINARY INCONTINENCE
     Dosage: 4 MG, 1X/DAY
     Dates: start: 20090401
  2. LIPITOR [Concomitant]
     Dosage: 20 MG, UNK
  3. SITAGLIPTIN [Concomitant]
     Indication: DIABETES MELLITUS
     Dosage: UNK
  4. METFORMIN [Concomitant]
     Indication: DIABETES MELLITUS
     Dosage: UNK
  5. DIOVAN HCT [Concomitant]
     Dosage: 160/12.5 MG
     Route: 048
  6. ALEVE (CAPLET) [Concomitant]
     Dosage: UNK
  7. MULTI-VITAMINS [Concomitant]
     Dosage: SOMETIMES TAKES ONE A DAY

REACTIONS (4)
  - BACK PAIN [None]
  - URINARY TRACT DISORDER [None]
  - URINARY TRACT INFECTION [None]
  - WEIGHT DECREASED [None]
